FAERS Safety Report 12634664 (Version 1)
Quarter: 2016Q3

REPORT INFORMATION
  Report Type: Spontaneous
  Country: CH (occurrence: CH)
  Receive Date: 20160809
  Receipt Date: 20160809
  Transmission Date: 20161109
  Serious: Yes (Hospitalization, Other)
  Sender: FDA-Public Use
  Company Number: CH-PFIZER INC-2016379658

PATIENT
  Age: 68 Year
  Sex: Male
  Weight: 100 kg

DRUGS (14)
  1. UVAMIN [Suspect]
     Active Substance: NITROFURANTOIN
     Dosage: 100 MG, QD
     Route: 048
     Dates: start: 20160603, end: 20160606
  2. DITROPAN [Concomitant]
     Active Substance: OXYBUTYNIN CHLORIDE
     Dosage: 5 MG, BID
     Route: 048
     Dates: end: 20160617
  3. LAXOBERON [Concomitant]
     Active Substance: SODIUM PICOSULFATE
     Dosage: UNK
     Route: 048
  4. DAFALGAN [Concomitant]
     Active Substance: ACETAMINOPHEN
     Dosage: 1000 MG, UNK
     Route: 048
  5. REMERON [Concomitant]
     Active Substance: MIRTAZAPINE
     Dosage: 15 MG, QD
     Route: 048
     Dates: end: 20160617
  6. QUETIAPINE SANDOZ [Concomitant]
     Active Substance: QUETIAPINE
     Dosage: 25 MG, QD
     Route: 048
     Dates: start: 20160521, end: 20160617
  7. XARELTO [Concomitant]
     Active Substance: RIVAROXABAN
     Dosage: 20 MG, QD
     Route: 048
     Dates: start: 20160526, end: 20160614
  8. CEFEPIME [Suspect]
     Active Substance: CEFEPIME HYDROCHLORIDE
     Indication: OSTEOMYELITIS
     Dosage: 2 G, BID
     Route: 041
     Dates: start: 20160513, end: 20160618
  9. OSTEOSET-T [Suspect]
     Active Substance: CALCIUM SULFATE\TOBRAMYCIN SULFATE
     Indication: OSTEOMYELITIS
     Dosage: 30 G, UNK
     Route: 028
     Dates: start: 20160520
  10. LISINOPRIL SPIRIG [Suspect]
     Active Substance: LISINOPRIL
     Indication: HYPERTENSION
     Dosage: 10 MG, QD
     Route: 048
     Dates: end: 20160614
  11. BELOC /00376903/ [Concomitant]
     Active Substance: METOPROLOL TARTRATE
     Dosage: 50 MG, BID
     Route: 048
     Dates: end: 20160617
  12. METFORMIN SPIRIG HC [Concomitant]
     Indication: DIABETES MELLITUS
     Dosage: 500 MG, BID
     Route: 048
     Dates: end: 20160614
  13. PANTOZOL [Suspect]
     Active Substance: PANTOPRAZOLE SODIUM
     Dosage: 20 MG, QD
     Route: 048
     Dates: end: 20160614
  14. METHIONIN [Concomitant]
     Active Substance: METHIONINE
     Dosage: 500 MG, TID
     Route: 048
     Dates: end: 20160617

REACTIONS (4)
  - Drug prescribing error [Unknown]
  - Drug level increased [Recovered/Resolved]
  - Acute kidney injury [Recovering/Resolving]
  - Toxic encephalopathy [Recovered/Resolved]

NARRATIVE: CASE EVENT DATE: 20160610
